FAERS Safety Report 15682245 (Version 2)
Quarter: 2019Q1

REPORT INFORMATION
  Report Type: Report from Study
  Country: US (occurrence: US)
  Receive Date: 20181203
  Receipt Date: 20190111
  Transmission Date: 20190417
  Serious: Yes (Hospitalization, Other)
  Sender: FDA-Public Use
  Company Number: US-GILEAD-2018-0377693

PATIENT
  Age: 64 Year
  Sex: Male
  Weight: 81 kg

DRUGS (13)
  1. CEFTIN [CEFATRIZINE PROPYLENEGLYCOLATE] [Concomitant]
  2. AVIDOXY [Concomitant]
  3. PRAVACHOL [Concomitant]
     Active Substance: PRAVASTATIN SODIUM
  4. PAXIL [Concomitant]
     Active Substance: PAROXETINE HYDROCHLORIDE
  5. IRON [FERROUS FUMARATE] [Concomitant]
  6. K-TAB [Concomitant]
     Active Substance: POTASSIUM CHLORIDE
  7. AMBRISENTAN [Suspect]
     Active Substance: AMBRISENTAN
     Indication: PULMONARY ARTERIAL HYPERTENSION
     Dosage: 10 MG, QD
     Route: 048
     Dates: start: 20130110
  8. HYTRIN [Concomitant]
     Active Substance: TERAZOSIN HYDROCHLORIDE
  9. REVATIO [Concomitant]
     Active Substance: SILDENAFIL CITRATE
  10. COUMADIN [Concomitant]
     Active Substance: WARFARIN SODIUM
  11. VELETRI [Concomitant]
     Active Substance: EPOPROSTENOL
  12. CORDARONE [Concomitant]
     Active Substance: AMIODARONE HYDROCHLORIDE
  13. LASIX [Concomitant]
     Active Substance: FUROSEMIDE

REACTIONS (1)
  - Acute respiratory failure [Recovered/Resolved]

NARRATIVE: CASE EVENT DATE: 20181114
